FAERS Safety Report 14191279 (Version 3)
Quarter: 2018Q1

REPORT INFORMATION
  Report Type: Spontaneous
  Country: DE (occurrence: DE)
  Receive Date: 20171115
  Receipt Date: 20180223
  Transmission Date: 20180508
  Serious: Yes (Other)
  Sender: FDA-Public Use
  Company Number: DE-UCBSA-2017045382

PATIENT
  Age: 62 Year
  Sex: Male

DRUGS (1)
  1. NEUPRO [Suspect]
     Active Substance: ROTIGOTINE
     Indication: RESTLESS LEGS SYNDROME
     Dosage: 3 MG, ONCE DAILY (QD)
     Route: 062

REACTIONS (7)
  - Application site pruritus [Unknown]
  - Application site haemorrhage [Unknown]
  - Nightmare [Unknown]
  - Intentional product misuse [Unknown]
  - Application site erythema [Unknown]
  - Insomnia [Unknown]
  - Pneumonia [Unknown]
